FAERS Safety Report 10518825 (Version 2)
Quarter: 2014Q4

REPORT INFORMATION
  Report Type: Spontaneous
  Country: FR (occurrence: GB)
  Receive Date: 20141015
  Receipt Date: 20141015
  Transmission Date: 20150528
  Serious: Yes (Hospitalization)
  Sender: FDA-Public Use
  Company Number: FR-MYLANLABS-2004S1001896

PATIENT

DRUGS (12)
  1. FOLIC ACID. [Concomitant]
     Active Substance: FOLIC ACID
     Dosage: UNK
     Dates: start: 200305
  2. RANITIDINE [Concomitant]
     Active Substance: RANITIDINE\RANITIDINE HYDROCHLORIDE
     Dosage: UNK
  3. THYROXINE [Concomitant]
     Active Substance: LEVOTHYROXINE
     Dosage: UNK
  4. MERCAPTAMINE [Suspect]
     Active Substance: CYSTEAMINE
     Indication: CYSTINOSIS
     Dosage: UNK
     Route: 048
     Dates: start: 199904
  5. KETOVITE /00479801/ [Concomitant]
     Dosage: UNK
     Dates: start: 200305
  6. MERCAPTAMINE [Suspect]
     Active Substance: CYSTEAMINE
     Dosage: 44 MG/KG, QD
     Route: 048
     Dates: start: 20040601
  7. CALCIUM CARBONATE. [Concomitant]
     Active Substance: CALCIUM CARBONATE
     Dosage: UNK
     Dates: start: 200312
  8. MERCAPTAMINE [Suspect]
     Active Substance: CYSTEAMINE
     Dosage: 47 MG/KG, QD
     Route: 048
  9. MERCAPTAMINE [Suspect]
     Active Substance: CYSTEAMINE
     Dosage: 44 MG/KG,QD
     Route: 048
     Dates: end: 200305
  10. MERCAPTAMINE [Suspect]
     Active Substance: CYSTEAMINE
     Dosage: 89 MG/KG,QD
     Dates: start: 200305
  11. ALFACALCIDOL [Concomitant]
     Active Substance: ALFACALCIDOL
     Dosage: UNK
     Dates: start: 200401
  12. NIFEDIPINE. [Concomitant]
     Active Substance: NIFEDIPINE
     Dosage: UNK

REACTIONS (6)
  - Encephalopathy [Recovered/Resolved]
  - Gastrooesophageal reflux disease [Recovered/Resolved]
  - Amnesia [Not Recovered/Not Resolved]
  - Seizure [Recovered/Resolved]
  - Anaemia [Recovered/Resolved]
  - Vomiting [Recovered/Resolved]

NARRATIVE: CASE EVENT DATE: 20030604
